FAERS Safety Report 5084841-6 (Version None)
Quarter: 2006Q3

REPORT INFORMATION
  Report Type: 
  Country: None (occurrence: None)
  Receive Date: 20060815
  Receipt Date: 20060720
  Transmission Date: 20061208
  Serious: Yes (Other)
  Sender: FDA-Public Use
  Company Number: 02100-JPN-06-0338

PATIENT
  Age: 75 Year
  Sex: Male

DRUGS (7)
  1. CILOSTAZOL [Suspect]
     Dosage: 200 MG
     Route: 048
     Dates: start: 20060608, end: 20060707
  2. TICLOPIDINE HYDROCHLORIDE [Suspect]
     Route: 048
     Dates: start: 20060608, end: 20060619
  3. ASPIRIN [Suspect]
     Route: 048
     Dates: start: 20060619, end: 20060713
  4. ENALAPRIL MALEATE [Concomitant]
  5. CARVEDILOL [Concomitant]
  6. AMLODIPINE BESYLATE [Concomitant]
  7. OLMESARTAN MEDOXOMIL [Concomitant]

REACTIONS (4)
  - ALANINE AMINOTRANSFERASE INCREASED [None]
  - ASPARTATE AMINOTRANSFERASE INCREASED [None]
  - CHOLESTASIS [None]
  - JAUNDICE [None]
